FAERS Safety Report 9604449 (Version 1)
Quarter: 2013Q4

REPORT INFORMATION
  Report Type: Spontaneous
  Country: GB (occurrence: GB)
  Receive Date: 20131008
  Receipt Date: 20131008
  Transmission Date: 20140711
  Serious: Yes (Hospitalization)
  Sender: FDA-Public Use
  Company Number: GB-MYLANLABS-2013S1021617

PATIENT
  Age: 71 Year
  Sex: Male

DRUGS (6)
  1. ROCURONIUM BROMIDE [Suspect]
     Indication: INDUCTION OF ANAESTHESIA
     Dosage: 1.2 MG/KG
     Route: 065
  2. THIOPENTAL SODIUM [Concomitant]
     Indication: INDUCTION OF ANAESTHESIA
     Dosage: 1.6 MG/KG
     Route: 065
  3. FENTANYL [Concomitant]
     Indication: PERIOPERATIVE ANALGESIA
     Route: 065
  4. ISOFLURANE [Concomitant]
     Indication: MAINTENANCE OF ANAESTHESIA
     Route: 065
  5. OXYGEN [Concomitant]
     Indication: MAINTENANCE OF ANAESTHESIA
     Route: 065
  6. AMOXICILLIN [Concomitant]
     Route: 065

REACTIONS (2)
  - Neuromuscular block prolonged [Recovered/Resolved]
  - Recurrence of neuromuscular blockade [Recovered/Resolved]
